FAERS Safety Report 22399900 (Version 1)
Quarter: 2023Q2

REPORT INFORMATION
  Report Type: Spontaneous
  Country: US (occurrence: US)
  Receive Date: 20230602
  Receipt Date: 20230602
  Transmission Date: 20230722
  Serious: Yes (Other)
  Sender: FDA-Public Use
  Company Number: US-BAYER-2023A072720

PATIENT
  Sex: Female

DRUGS (1)
  1. MIRALAX [Suspect]
     Active Substance: POLYETHYLENE GLYCOL 3350
     Indication: Gastrointestinal disorder
     Dosage: ONE CAP IN 9 OZ WATER
     Route: 048
     Dates: start: 202212, end: 202212

REACTIONS (3)
  - Haemorrhage [None]
  - Diarrhoea [Recovered/Resolved]
  - Muscle spasms [Recovered/Resolved]
